FAERS Safety Report 5280004-X (Version None)
Quarter: 2007Q1

REPORT INFORMATION
  Report Type: 
  Country: None (occurrence: None)
  Receive Date: 20070329
  Receipt Date: 20070316
  Transmission Date: 20070707
  Serious: Yes (Life-Threatening, Hospitalization)
  Sender: FDA-Public Use
  Company Number: DE-JNJFOC-20070304495

PATIENT
  Sex: Male
  Weight: 68 kg

DRUGS (6)
  1. REMICADE [Suspect]
     Route: 042
  2. REMICADE [Suspect]
     Indication: COLITIS ULCERATIVE
     Route: 042
  3. TACROLIMUS [Concomitant]
  4. TACROLIMUS [Concomitant]
  5. AZATHIOPRINE [Concomitant]
  6. DECORTIN H [Concomitant]
     Route: 048

REACTIONS (7)
  - BRONCHOPULMONARY ASPERGILLOSIS [None]
  - DISSEMINATED INTRAVASCULAR COAGULATION [None]
  - HYPERTHYROIDISM [None]
  - IMMUNE SYSTEM DISORDER [None]
  - MENINGITIS LISTERIA [None]
  - SEPSIS [None]
  - TRI-IODOTHYRONINE DECREASED [None]
